FAERS Safety Report 20301749 (Version 2)
Quarter: 2022Q1

REPORT INFORMATION
  Report Type: Other
  Country: US (occurrence: US)
  Receive Date: 20220105
  Receipt Date: 20220330
  Transmission Date: 20220423
  Serious: Yes (Hospitalization, Other)
  Sender: FDA-Public Use
  Company Number: US-Covis Pharma GmbH-2022COV00034

PATIENT
  Age: 0 Year
  Sex: Female
  Weight: 2.660 kg

DRUGS (1)
  1. MAKENA [Suspect]
     Active Substance: HYDROXYPROGESTERONE CAPROATE
     Indication: Foetal exposure during pregnancy
     Route: 064
     Dates: start: 20210827, end: 20211129

REACTIONS (7)
  - Foetal hypokinesia [Unknown]
  - Foetal heart rate abnormal [Unknown]
  - Foetal distress syndrome [Unknown]
  - Neonatal respiratory distress [Unknown]
  - Hypoxic-ischaemic encephalopathy [Unknown]
  - COVID-19 [Unknown]
  - Premature baby [Unknown]

NARRATIVE: CASE EVENT DATE: 20211214
